FAERS Safety Report 25831053 (Version 2)
Quarter: 2025Q3

REPORT INFORMATION
  Report Type: Spontaneous
  Country: EU (occurrence: EU)
  Receive Date: 20250922
  Receipt Date: 20250925
  Transmission Date: 20251021
  Serious: Yes (Hospitalization)
  Sender: MYLAN
  Company Number: None

PATIENT
  Age: 56 Year
  Sex: Female
  Weight: 74 kg

DRUGS (44)
  1. KETOPROFEN [Interacting]
     Active Substance: KETOPROFEN
     Indication: Tendonitis
     Dosage: 100 MILLIGRAM, BID
     Dates: start: 20250730, end: 20250806
  2. KETOPROFEN [Interacting]
     Active Substance: KETOPROFEN
     Dosage: 100 MILLIGRAM, BID
     Route: 048
     Dates: start: 20250730, end: 20250806
  3. KETOPROFEN [Interacting]
     Active Substance: KETOPROFEN
     Dosage: 100 MILLIGRAM, BID
     Route: 048
     Dates: start: 20250730, end: 20250806
  4. KETOPROFEN [Interacting]
     Active Substance: KETOPROFEN
     Dosage: 100 MILLIGRAM, BID
     Dates: start: 20250730, end: 20250806
  5. IRBESARTAN [Interacting]
     Active Substance: IRBESARTAN
     Indication: Hypertension
     Dosage: 300 MILLIGRAM, QD
     Dates: start: 2023, end: 20250806
  6. IRBESARTAN [Interacting]
     Active Substance: IRBESARTAN
     Dosage: 300 MILLIGRAM, QD
     Route: 048
     Dates: start: 2023, end: 20250806
  7. IRBESARTAN [Interacting]
     Active Substance: IRBESARTAN
     Dosage: 300 MILLIGRAM, QD
     Route: 048
     Dates: start: 2023, end: 20250806
  8. IRBESARTAN [Interacting]
     Active Substance: IRBESARTAN
     Dosage: 300 MILLIGRAM, QD
     Dates: start: 2023, end: 20250806
  9. METFORMIN [Interacting]
     Active Substance: METFORMIN HYDROCHLORIDE
     Indication: Type 2 diabetes mellitus
     Dosage: 1000 MILLIGRAM, BID
     Dates: start: 2023, end: 20250806
  10. METFORMIN [Interacting]
     Active Substance: METFORMIN HYDROCHLORIDE
     Dosage: 1000 MILLIGRAM, BID
     Route: 048
     Dates: start: 2023, end: 20250806
  11. METFORMIN [Interacting]
     Active Substance: METFORMIN HYDROCHLORIDE
     Dosage: 1000 MILLIGRAM, BID
     Route: 048
     Dates: start: 2023, end: 20250806
  12. METFORMIN [Interacting]
     Active Substance: METFORMIN HYDROCHLORIDE
     Dosage: 1000 MILLIGRAM, BID
     Dates: start: 2023, end: 20250806
  13. OZEMPIC [Interacting]
     Active Substance: SEMAGLUTIDE
     Indication: Type 2 diabetes mellitus
     Dosage: 1 MILLIGRAM, MONTHLY
     Dates: start: 2023, end: 20250805
  14. OZEMPIC [Interacting]
     Active Substance: SEMAGLUTIDE
     Dosage: 1 MILLIGRAM, MONTHLY
     Route: 058
     Dates: start: 2023, end: 20250805
  15. OZEMPIC [Interacting]
     Active Substance: SEMAGLUTIDE
     Dosage: 1 MILLIGRAM, MONTHLY
     Route: 058
     Dates: start: 2023, end: 20250805
  16. OZEMPIC [Interacting]
     Active Substance: SEMAGLUTIDE
     Dosage: 1 MILLIGRAM, MONTHLY
     Dates: start: 2023, end: 20250805
  17. HYDROCHLOROTHIAZIDE [Concomitant]
     Active Substance: HYDROCHLOROTHIAZIDE
     Indication: Hypertension
     Dosage: 25 MILLIGRAM, QD
  18. HYDROCHLOROTHIAZIDE [Concomitant]
     Active Substance: HYDROCHLOROTHIAZIDE
     Dosage: 25 MILLIGRAM, QD
     Route: 048
  19. HYDROCHLOROTHIAZIDE [Concomitant]
     Active Substance: HYDROCHLOROTHIAZIDE
     Dosage: 25 MILLIGRAM, QD
     Route: 048
  20. HYDROCHLOROTHIAZIDE [Concomitant]
     Active Substance: HYDROCHLOROTHIAZIDE
     Dosage: 25 MILLIGRAM, QD
  21. ATENOLOL [Concomitant]
     Active Substance: ATENOLOL
     Indication: Hypertension
     Dosage: 25 MILLIGRAM, QD
  22. ATENOLOL [Concomitant]
     Active Substance: ATENOLOL
     Dosage: 25 MILLIGRAM, QD
     Route: 048
  23. ATENOLOL [Concomitant]
     Active Substance: ATENOLOL
     Dosage: 25 MILLIGRAM, QD
     Route: 048
  24. ATENOLOL [Concomitant]
     Active Substance: ATENOLOL
     Dosage: 25 MILLIGRAM, QD
  25. KARDEGIC [Concomitant]
     Active Substance: ASPIRIN DL-LYSINE
     Indication: Cardiovascular event prophylaxis
     Dosage: 75 MILLIGRAM, QD
  26. KARDEGIC [Concomitant]
     Active Substance: ASPIRIN DL-LYSINE
     Dosage: 75 MILLIGRAM, QD
     Route: 048
  27. KARDEGIC [Concomitant]
     Active Substance: ASPIRIN DL-LYSINE
     Dosage: 75 MILLIGRAM, QD
     Route: 048
  28. KARDEGIC [Concomitant]
     Active Substance: ASPIRIN DL-LYSINE
     Dosage: 75 MILLIGRAM, QD
  29. FENOFIBRATE [Concomitant]
     Active Substance: FENOFIBRATE
     Indication: Cardiovascular event prophylaxis
     Dosage: 67 MILLIGRAM, QD
  30. FENOFIBRATE [Concomitant]
     Active Substance: FENOFIBRATE
     Dosage: 67 MILLIGRAM, QD
     Route: 048
  31. FENOFIBRATE [Concomitant]
     Active Substance: FENOFIBRATE
     Dosage: 67 MILLIGRAM, QD
     Route: 048
  32. FENOFIBRATE [Concomitant]
     Active Substance: FENOFIBRATE
     Dosage: 67 MILLIGRAM, QD
  33. OMEPRAZOLE [Concomitant]
     Active Substance: OMEPRAZOLE
     Indication: Prophylaxis against gastrointestinal ulcer
     Dosage: 20 MILLIGRAM, QD
     Dates: start: 20250730, end: 20250806
  34. OMEPRAZOLE [Concomitant]
     Active Substance: OMEPRAZOLE
     Dosage: 20 MILLIGRAM, QD
     Route: 048
     Dates: start: 20250730, end: 20250806
  35. OMEPRAZOLE [Concomitant]
     Active Substance: OMEPRAZOLE
     Dosage: 20 MILLIGRAM, QD
     Route: 048
     Dates: start: 20250730, end: 20250806
  36. OMEPRAZOLE [Concomitant]
     Active Substance: OMEPRAZOLE
     Dosage: 20 MILLIGRAM, QD
     Dates: start: 20250730, end: 20250806
  37. ACETAMINOPHEN [Concomitant]
     Active Substance: ACETAMINOPHEN
     Indication: Pain
     Dosage: 1000 MILLIGRAM, Q8H
     Dates: start: 20250730, end: 20250806
  38. ACETAMINOPHEN [Concomitant]
     Active Substance: ACETAMINOPHEN
     Dosage: 1000 MILLIGRAM, Q8H
     Route: 048
     Dates: start: 20250730, end: 20250806
  39. ACETAMINOPHEN [Concomitant]
     Active Substance: ACETAMINOPHEN
     Dosage: 1000 MILLIGRAM, Q8H
     Route: 048
     Dates: start: 20250730, end: 20250806
  40. ACETAMINOPHEN [Concomitant]
     Active Substance: ACETAMINOPHEN
     Dosage: 1000 MILLIGRAM, Q8H
     Dates: start: 20250730, end: 20250806
  41. METOPIMAZINE [Concomitant]
     Active Substance: METOPIMAZINE
     Indication: Vomiting
     Dates: start: 20250804, end: 20250806
  42. METOPIMAZINE [Concomitant]
     Active Substance: METOPIMAZINE
     Route: 048
     Dates: start: 20250804, end: 20250806
  43. METOPIMAZINE [Concomitant]
     Active Substance: METOPIMAZINE
     Route: 048
     Dates: start: 20250804, end: 20250806
  44. METOPIMAZINE [Concomitant]
     Active Substance: METOPIMAZINE
     Dates: start: 20250804, end: 20250806

REACTIONS (3)
  - Acute kidney injury [Recovering/Resolving]
  - Lactic acidosis [Recovering/Resolving]
  - Drug interaction [Recovered/Resolved]

NARRATIVE: CASE EVENT DATE: 20250730
